FAERS Safety Report 8819245 (Version 1)
Quarter: 2012Q4

REPORT INFORMATION
  Report Type: Spontaneous
  Country: US (occurrence: None)
  Receive Date: 20121004
  Receipt Date: 20121004
  Transmission Date: 20130627
  Serious: Yes (Other)
  Sender: FDA-Public Use
  Company Number: None

PATIENT
  Age: 38 Year
  Sex: Female
  Weight: 49.9 kg

DRUGS (1)
  1. LATISSE 0.03% [Suspect]
     Indication: EYELASH THINNING

REACTIONS (3)
  - Eyelid infection [None]
  - Eye infection [None]
  - Impaired work ability [None]
